FAERS Safety Report 9206233 (Version 2)
Quarter: 2014Q1

REPORT INFORMATION
  Report Type: Spontaneous
  Country: US (occurrence: US)
  Receive Date: 20130403
  Receipt Date: 20140102
  Transmission Date: 20141002
  Serious: Yes (Other)
  Sender: FDA-Public Use
  Company Number: US-BAYER-2013-040025

PATIENT
  Age: 19 Year
  Sex: Female

DRUGS (4)
  1. YAZ [Suspect]
     Dosage: UNK
     Dates: start: 200806, end: 200911
  2. YASMIN [Suspect]
     Dosage: UNK
     Dates: start: 200806, end: 200911
  3. ETODOLAC [Concomitant]
     Dosage: 400 MG - TK (TAKE) 1 T TID PRN (TABLET THREE TIMES DAILY AS NEEDED)
     Route: 048
  4. TRAMADOL [Concomitant]
     Dosage: 50 MG - TK 1 T Q (EVERY) 4 H (HOUR) PRN
     Route: 048

REACTIONS (6)
  - Cholelithiasis [None]
  - Pain [None]
  - Injury [None]
  - Emotional distress [None]
  - Anxiety [None]
  - Psychological trauma [None]
